FAERS Safety Report 7508103-X (Version None)
Quarter: 2011Q2

REPORT INFORMATION
  Report Type: 
  Country: None (occurrence: None)
  Receive Date: 20110527
  Receipt Date: 20110509
  Transmission Date: 20111010
  Serious: Yes (Hospitalization, Other)
  Sender: FDA-Public Use
  Company Number: US-BAYER-201039044NA

PATIENT
  Age: 25 Year
  Sex: Female
  Weight: 62.585 kg

DRUGS (1)
  1. YAZ [Suspect]
     Indication: PRODUCT USED FOR UNKNOWN INDICATION

REACTIONS (13)
  - PANIC DISORDER [None]
  - POST-TRAUMATIC STRESS DISORDER [None]
  - PAIN [None]
  - VOMITING [None]
  - GALLBLADDER NON-FUNCTIONING [None]
  - ABDOMINAL PAIN [None]
  - DEPRESSION [None]
  - CHOLECYSTITIS CHRONIC [None]
  - NEUROMA [None]
  - NERVE INJURY [None]
  - NAUSEA [None]
  - ANXIETY [None]
  - PANIC ATTACK [None]
